FAERS Safety Report 7173381-6 (Version None)
Quarter: 2010Q4

REPORT INFORMATION
  Report Type: 
  Country: None (occurrence: None)
  Receive Date: 20101202
  Receipt Date: 20101123
  Transmission Date: 20110411
  Serious: Yes (Hospitalization)
  Sender: FDA-Public Use
  Company Number: GER/UKI/10/0016728

PATIENT
  Age: 53 Year
  Sex: Female
  Weight: 73 kg

DRUGS (5)
  1. OMEPRAZOLE [Suspect]
     Indication: DYSPEPSIA
     Dosage: 20 MG, ORAL
     Route: 048
     Dates: end: 20100927
  2. ATENOLOL [Concomitant]
  3. CANDESARTAN CILEXETIL [Concomitant]
  4. FELODIPINE [Concomitant]
  5. ROSUVASTATIN [Concomitant]

REACTIONS (3)
  - HYPOAESTHESIA FACIAL [None]
  - HYPOCALCAEMIA [None]
  - HYPOMAGNESAEMIA [None]
